FAERS Safety Report 6085103-0 (Version None)
Quarter: 2009Q1

REPORT INFORMATION
  Report Type: 
  Country: None (occurrence: None)
  Receive Date: 20090217
  Receipt Date: 20090209
  Transmission Date: 20090719
  Serious: Yes (Other)
  Sender: FDA-Public Use
  Company Number: CHPA2009US03787

PATIENT
  Age: 62 Year
  Sex: Male
  Weight: 89.8 kg

DRUGS (1)
  1. NICOTINE [Suspect]
     Indication: SMOKING CESSATION THERAPY
     Dosage: 21 MG, QD, TRANSDERMAL
     Route: 062
     Dates: start: 20090203, end: 20090204

REACTIONS (3)
  - BLISTER [None]
  - BURNS THIRD DEGREE [None]
  - WOUND SECRETION [None]
